FAERS Safety Report 24161030 (Version 1)
Quarter: 2024Q3

REPORT INFORMATION
  Report Type: Spontaneous
  Country: ES (occurrence: ES)
  Receive Date: 20240801
  Receipt Date: 20240801
  Transmission Date: 20241016
  Serious: Yes (Hospitalization, Other)
  Sender: HIKMA
  Company Number: ES-MLMSERVICE-20240712-PI130236-00082-2

PATIENT
  Age: 65 Year
  Sex: Male

DRUGS (6)
  1. CARBOPLATIN [Suspect]
     Active Substance: CARBOPLATIN
     Indication: Leukocytosis
     Dosage: UNK
     Route: 065
     Dates: start: 2023
  2. CARBOPLATIN [Suspect]
     Active Substance: CARBOPLATIN
     Indication: Paraneoplastic syndrome
  3. CARBOPLATIN [Suspect]
     Active Substance: CARBOPLATIN
     Indication: Renal cell carcinoma
  4. PACLITAXEL [Suspect]
     Active Substance: PACLITAXEL
     Indication: Paraneoplastic syndrome
     Dosage: UNK
     Route: 065
     Dates: start: 2023
  5. PACLITAXEL [Suspect]
     Active Substance: PACLITAXEL
     Indication: Renal neoplasm
  6. PIPERACILLIN SODIUM\TAZOBACTAM SODIUM [Concomitant]
     Active Substance: PIPERACILLIN SODIUM\TAZOBACTAM SODIUM
     Indication: Evidence based treatment
     Dosage: UNK
     Route: 065
     Dates: start: 202305

REACTIONS (4)
  - Chronic kidney disease [Recovering/Resolving]
  - Condition aggravated [Recovering/Resolving]
  - Neutropenia [Recovering/Resolving]
  - Tumour lysis syndrome [Recovering/Resolving]

NARRATIVE: CASE EVENT DATE: 20230101
